FAERS Safety Report 14329973 (Version 1)
Quarter: 2017Q4

REPORT INFORMATION
  Report Type: Spontaneous
  Country: US (occurrence: US)
  Receive Date: 20171227
  Receipt Date: 20171227
  Transmission Date: 20180321
  Serious: No
  Sender: FDA-Public Use
  Company Number: US-AVEDRO-AVE-2017-0318-AE

PATIENT

DRUGS (1)
  1. PHOTREXA VISCOUS [Suspect]
     Active Substance: RIBOFLAVIN 5^-PHOSPHATE SODIUM
     Indication: PRODUCT USED FOR UNKNOWN INDICATION
     Dosage: ONE VIAL USED, USED MORE THAN THE RECOMMENDED ONE DROP EARLY IN THE PROCEDURE
     Route: 047

REACTIONS (3)
  - No adverse event [Unknown]
  - Product dropper issue [Unknown]
  - Incorrect dose administered [Unknown]
